FAERS Safety Report 20935151 (Version 2)
Quarter: 2022Q2

REPORT INFORMATION
  Report Type: Report from Study
  Country: CA (occurrence: CA)
  Receive Date: 20220608
  Receipt Date: 20220628
  Transmission Date: 20220721
  Serious: Yes (Death)
  Sender: FDA-Public Use
  Company Number: CA-ABBVIE-22K-028-4426670-00

PATIENT
  Sex: Male

DRUGS (3)
  1. LUPRON DEPOT [Suspect]
     Active Substance: LEUPROLIDE ACETATE
     Indication: Prostate cancer
     Route: 030
     Dates: start: 20190301, end: 20210527
  2. ETOPOSIDE [Concomitant]
     Active Substance: ETOPOSIDE
     Indication: Prostate cancer
     Dates: start: 202105, end: 202107
  3. CARBOPLATIN [Concomitant]
     Active Substance: CARBOPLATIN
     Indication: Prostate cancer
     Dates: start: 202105, end: 202107

REACTIONS (1)
  - Prostate cancer stage IV [Fatal]
